FAERS Safety Report 11998961 (Version 1)
Quarter: 2016Q1

REPORT INFORMATION
  Report Type: Spontaneous
  Country: US (occurrence: None)
  Receive Date: 20160203
  Receipt Date: 20160203
  Transmission Date: 20160526
  Serious: Yes (Disabling, Other)
  Sender: FDA-Public Use
  Company Number: None

PATIENT
  Age: 56 Year
  Sex: Male
  Weight: 147.42 kg

DRUGS (1)
  1. ATENOLOL GEN TA (SANDOZ) [Suspect]
     Active Substance: ATENOLOL
     Indication: HYPERTENSION
     Dosage: 50 MG 1 PILL 1 DAILY MOUTH
     Route: 048
     Dates: start: 20130823, end: 20130913

REACTIONS (4)
  - Adverse drug reaction [None]
  - Dyspnoea [None]
  - Laboratory test interference [None]
  - Drug prescribing error [None]

NARRATIVE: CASE EVENT DATE: 20130823
